FAERS Safety Report 5629862-7 (Version None)
Quarter: 2008Q1

REPORT INFORMATION
  Report Type: 
  Country: None (occurrence: None)
  Receive Date: 20080218
  Receipt Date: 20070410
  Transmission Date: 20080703
  Serious: Yes (Hospitalization)
  Sender: FDA-Public Use
  Company Number: US-ASTRAZENECA-2007UW02039

PATIENT
  Age: 191 Month
  Sex: Female
  Weight: 90.9 kg

DRUGS (4)
  1. SEROQUEL [Suspect]
     Indication: MOOD SWINGS
     Dosage: 50-300 MG
     Route: 048
     Dates: start: 20010706, end: 20030201
  2. SEROQUEL [Suspect]
     Indication: IRRITABILITY
     Dosage: 50-300 MG
     Route: 048
     Dates: start: 20010706, end: 20030201
  3. SEROQUEL [Suspect]
     Indication: ANGER
     Dosage: 50-300 MG
     Route: 048
     Dates: start: 20010706, end: 20030201
  4. RISPERDAL [Concomitant]
     Dosage: AROUND 20 MG
     Dates: start: 20040401, end: 20040901

REACTIONS (6)
  - ASTHMA [None]
  - DIABETES MELLITUS [None]
  - HOMICIDAL IDEATION [None]
  - OBESITY [None]
  - SUICIDAL IDEATION [None]
  - WEIGHT INCREASED [None]
